FAERS Safety Report 22060714 (Version 2)
Quarter: 2023Q1

REPORT INFORMATION
  Report Type: Spontaneous
  Country: US (occurrence: US)
  Receive Date: 20230303
  Receipt Date: 20230307
  Transmission Date: 20230418
  Serious: Yes (Hospitalization, Other)
  Sender: FDA-Public Use
  Company Number: US-PFIZER INC-PV202300040085

PATIENT
  Age: 88 Year
  Sex: Female
  Weight: 58.51 kg

DRUGS (1)
  1. VYNDAMAX [Suspect]
     Active Substance: TAFAMIDIS
     Dosage: 61 MG, 1X/DAY

REACTIONS (3)
  - Pneumonia [Unknown]
  - Vascular occlusion [Unknown]
  - Lethargy [Unknown]
